FAERS Safety Report 5226341-6 (Version None)
Quarter: 2007Q1

REPORT INFORMATION
  Report Type: 
  Country: None (occurrence: None)
  Receive Date: 20070129
  Receipt Date: 20070111
  Transmission Date: 20070707
  Serious: Yes (Other)
  Sender: FDA-Public Use
  Company Number: TRP_0910_2007

PATIENT
  Age: 53 Year
  Sex: Female

DRUGS (7)
  1. RIBASPHERE [Suspect]
     Indication: HEPATITIS C
     Dosage: 1400 MG QDAY; PO
     Route: 048
     Dates: start: 20061201
  2. PEG-INTRON [Suspect]
     Indication: HEPATITIS C
     Dosage: 150 MCG, QWK; SC
     Route: 058
     Dates: start: 20061006
  3. REBETOL [Suspect]
     Indication: HEPATITIS C
     Dosage: 1400 MG QDAY; PO
     Route: 048
     Dates: start: 20061006, end: 20061201
  4. PHENERGAN [Concomitant]
  5. SYNTHROID [Concomitant]
  6. LORCET-HD [Concomitant]
  7. MOTRIN [Concomitant]

REACTIONS (12)
  - ALOPECIA [None]
  - ANGER [None]
  - DEHYDRATION [None]
  - DEPRESSION [None]
  - DRUG HYPERSENSITIVITY [None]
  - DYSPHAGIA [None]
  - FOOD POISONING [None]
  - GLOSSODYNIA [None]
  - INFLUENZA LIKE ILLNESS [None]
  - POLLAKIURIA [None]
  - THIRST [None]
  - TONGUE DISORDER [None]
